FAERS Safety Report 9739321 (Version 1)
Quarter: 2013Q4

REPORT INFORMATION
  Report Type: Spontaneous
  Country: US (occurrence: US)
  Receive Date: 20131209
  Receipt Date: 20131209
  Transmission Date: 20140711
  Serious: No
  Sender: FDA-Public Use
  Company Number: US-GLAXOSMITHKLINE-A1044747A

PATIENT
  Sex: Male

DRUGS (2)
  1. FABIOR [Suspect]
     Indication: ACNE
     Route: 061
     Dates: start: 201310
  2. UNKNOWN [Concomitant]

REACTIONS (5)
  - Erythema [Unknown]
  - Pain [Unknown]
  - Skin exfoliation [Unknown]
  - Erythema [Unknown]
  - Skin exfoliation [Unknown]
